FAERS Safety Report 5223931-1 (Version None)
Quarter: 2007Q1

REPORT INFORMATION
  Report Type: 
  Country: None (occurrence: None)
  Receive Date: 20070130
  Receipt Date: 20070119
  Transmission Date: 20070707
  Serious: Yes (Death, Hospitalization, Other)
  Sender: FDA-Public Use
  Company Number: BE-JNJFOC-20070101598

PATIENT
  Age: 51 Year
  Sex: Male
  Weight: 64.7 kg

DRUGS (7)
  1. REMICADE [Suspect]
     Indication: RHEUMATOID ARTHRITIS
     Dosage: APPROXIMATELY 2 YEARS
     Route: 042
  2. RIVOTRIL [Concomitant]
     Route: 065
  3. LEDERTREXATE [Concomitant]
     Route: 058
  4. MEDROL [Concomitant]
     Route: 065
  5. MESULID [Concomitant]
     Route: 065
  6. SIPRALEXA [Concomitant]
     Route: 065
  7. FOLAVIT [Concomitant]
     Route: 065

REACTIONS (6)
  - EMPYEMA [None]
  - LARGE CELL LUNG CANCER STAGE IV [None]
  - LOWER RESPIRATORY TRACT INFECTION [None]
  - METASTASES TO LIVER [None]
  - RESPIRATORY FAILURE [None]
  - VOCAL CORD PARALYSIS [None]
